FAERS Safety Report 5469408-X (Version None)
Quarter: 2007Q3

REPORT INFORMATION
  Report Type: 
  Country: None (occurrence: None)
  Receive Date: 20070927
  Receipt Date: 20070921
  Transmission Date: 20080115
  Serious: Yes (Other)
  Sender: FDA-Public Use
  Company Number: GB-AVENTIS-200718700GDDC

PATIENT
  Age: 8 Year
  Sex: Male

DRUGS (1)
  1. DESMOTABS [Suspect]
     Route: 048
     Dates: start: 20070601, end: 20070701

REACTIONS (2)
  - INSOMNIA [None]
  - POOR QUALITY SLEEP [None]
